FAERS Safety Report 4824671-0 (Version None)
Quarter: 2005Q4

REPORT INFORMATION
  Report Type: 
  Country: None (occurrence: None)
  Receive Date: 20051110
  Receipt Date: 20051031
  Transmission Date: 20060501
  Serious: Yes (Other)
  Sender: FDA-Public Use
  Company Number: GB-BRISTOL-MYERS SQUIBB COMPANY-13172077

PATIENT
  Sex: Female

DRUGS (1)
  1. ABILIFY [Suspect]
     Indication: SCHIZOPHRENIA
     Route: 048

REACTIONS (7)
  - ABDOMINAL PAIN UPPER [None]
  - BIPOLAR I DISORDER [None]
  - DRUG INEFFECTIVE [None]
  - EUPHORIC MOOD [None]
  - MOOD ALTERED [None]
  - MYALGIA [None]
  - TRISMUS [None]
